FAERS Safety Report 7023137-X (Version None)
Quarter: 2010Q3

REPORT INFORMATION
  Report Type: 
  Country: None (occurrence: None)
  Receive Date: 20100930
  Receipt Date: 20100924
  Transmission Date: 20110219
  Serious: Yes (Other)
  Sender: FDA-Public Use
  Company Number: CHPA2010US15157

PATIENT
  Age: 50 Year
  Sex: Female
  Weight: 63.492 kg

DRUGS (1)
  1. TRANSDERM SCOP [Suspect]
     Dosage: 1 PATCH, EVERY 3 DAYS
     Route: 062
     Dates: start: 20100913, end: 20100919

REACTIONS (13)
  - BALANCE DISORDER [None]
  - CONFUSIONAL STATE [None]
  - DIZZINESS [None]
  - DYSKINESIA [None]
  - EYE MOVEMENT DISORDER [None]
  - HEADACHE [None]
  - MALAISE [None]
  - MENTAL IMPAIRMENT [None]
  - MOTOR DYSFUNCTION [None]
  - MUSCULAR WEAKNESS [None]
  - NAUSEA [None]
  - SPEECH DISORDER [None]
  - VOMITING [None]
